FAERS Safety Report 10095998 (Version 1)
Quarter: 2014Q2

REPORT INFORMATION
  Report Type: Spontaneous
  Country: CN (occurrence: CN)
  Receive Date: 20140422
  Receipt Date: 20140422
  Transmission Date: 20141212
  Serious: Yes (Other)
  Sender: FDA-Public Use
  Company Number: PHHY2014CN045230

PATIENT
  Age: 19 Year
  Sex: Male

DRUGS (14)
  1. EFAVIRENZ [Suspect]
     Indication: ANTIRETROVIRAL THERAPY
     Dates: start: 201109
  2. FLUCONAZOLE [Suspect]
     Indication: MENINGITIS CRYPTOCOCCAL
     Dosage: 400 MG
  3. LAMIVUDINE [Suspect]
     Indication: ANTIRETROVIRAL THERAPY
     Dates: start: 201109
  4. VORICONAZOLE [Interacting]
     Indication: MENINGITIS CRYPTOCOCCAL
     Dosage: 200 MG, Q12H
  5. AMPHOTERICIN B [Suspect]
     Indication: MENINGITIS CRYPTOCOCCAL
     Dosage: 0.7 MG/KG
     Route: 042
  6. AMPHOTERICIN B [Suspect]
     Dosage: 0.7 MG/KG
     Route: 042
  7. FLUCYTOSINE [Suspect]
     Indication: MENINGITIS CRYPTOCOCCAL
     Dosage: 100 MG/KG, IN 4 DIVIDED DOSES
  8. FLUCYTOSINE [Suspect]
     Dosage: 100 MG/KG, IN 4 DIVIDED DOSES
  9. FLUCYTOSINE [Suspect]
     Dosage: 100 MG/KG, IN 4 DIVIDED DOSES
  10. STAVUDINE [Suspect]
     Indication: ANTIRETROVIRAL THERAPY
     Dates: start: 201109
  11. TENOFOVIR [Suspect]
     Indication: ANTIRETROVIRAL THERAPY
  12. RALTEGRAVIR [Suspect]
     Indication: ANTIRETROVIRAL THERAPY
  13. AMOXICILLIN W/SULBACTAM [Suspect]
     Indication: MENINGITIS CRYPTOCOCCAL
  14. CORTICOSTEROIDS [Concomitant]

REACTIONS (8)
  - Immune reconstitution inflammatory syndrome [Recovered/Resolved]
  - Central nervous system lesion [Recovered/Resolved]
  - Lymphadenopathy mediastinal [Recovered/Resolved]
  - Neck mass [Unknown]
  - Neurocryptococcosis [Recovered/Resolved]
  - Cryptococcosis [Recovered/Resolved]
  - Pyrexia [Unknown]
  - Cough [Unknown]
